FAERS Safety Report 7264857-1 (Version None)
Quarter: 2011Q1

REPORT INFORMATION
  Report Type: 
  Country: None (occurrence: None)
  Receive Date: 20110131
  Receipt Date: 20100913
  Transmission Date: 20110831
  Serious: No
  Sender: FDA-Public Use
  Company Number: US-BAYER-201034292NA

PATIENT
  Sex: Female

DRUGS (1)
  1. MIRENA [Suspect]
     Indication: MUSCLE SPASMS
     Dosage: CONTINUOUS
     Route: 015
     Dates: start: 20080319

REACTIONS (8)
  - WEIGHT INCREASED [None]
  - ABDOMINAL DISTENSION [None]
  - HAIR GROWTH ABNORMAL [None]
  - MUSCLE SPASMS [None]
  - MENORRHAGIA [None]
  - PAIN [None]
  - DEVICE DISLOCATION [None]
  - DISCOMFORT [None]
